FAERS Safety Report 8595204-0 (Version None)
Quarter: 2012Q3

REPORT INFORMATION
  Report Type: 
  Country: None (occurrence: None)
  Receive Date: 20120807
  Receipt Date: 20120807
  Transmission Date: 20120928
  Serious: Yes (Death, Hospitalization)
  Sender: FDA-Public Use
  Company Number: None

PATIENT
  Sex: Female
  Weight: 69.9 kg

DRUGS (3)
  1. HERCEPTIN [Suspect]
     Dosage: 140 MG
     Dates: end: 20110810
  2. CARBOPLATIN [Suspect]
     Dosage: 792 MG
     Dates: end: 20110810
  3. TAXOTERE [Suspect]
     Dosage: 130 MG
     Dates: end: 20110810

REACTIONS (4)
  - URINARY TRACT INFECTION [None]
  - BACTERIAL SEPSIS [None]
  - PERITONITIS [None]
  - ABSCESS [None]
